FAERS Safety Report 13178915 (Version 2)
Quarter: 2017Q1

REPORT INFORMATION
  Report Type: Spontaneous
  Country: US (occurrence: US)
  Receive Date: 20170202
  Receipt Date: 20170208
  Transmission Date: 20170428
  Serious: Yes (Hospitalization)
  Sender: FDA-Public Use
  Company Number: US-PFIZER INC-2017045507

PATIENT
  Sex: Male

DRUGS (1)
  1. EFFEXOR XR [Suspect]
     Active Substance: VENLAFAXINE HYDROCHLORIDE
     Dosage: UNK
     Dates: start: 1991, end: 1999

REACTIONS (4)
  - Mental disorder [Unknown]
  - Anxiety [Unknown]
  - Drug ineffective [Unknown]
  - Anger [Unknown]

NARRATIVE: CASE EVENT DATE: 2016
